FAERS Safety Report 8609062 (Version 2)
Quarter: 2015Q2

REPORT INFORMATION
  Report Type: Spontaneous
  Country: US (occurrence: US)
  Receive Date: 20120611
  Receipt Date: 20150414
  Transmission Date: 20150821
  Serious: No
  Sender: FDA-Public Use
  Company Number: US-ASTRAZENECA-2012SE35182

PATIENT
  Age: 80 Year
  Sex: Female

DRUGS (3)
  1. SYMBICORT [Suspect]
     Active Substance: BUDESONIDE\FORMOTEROL FUMARATE DIHYDRATE
     Indication: ASTHMA
     Dosage: 160/4.5 MCG,TWO PUFFS IN MORNING AND TWO PUFFS AT NIGHT, TWO TIMES A DAY
     Route: 055
     Dates: start: 2012
  2. LUMIGAN [Concomitant]
     Active Substance: BIMATOPROST
     Indication: GLAUCOMA
     Dosage: 1 DROP IN EACH EYE IN THE EVENING
     Route: 047
  3. PROVENTIL [Concomitant]
     Active Substance: ALBUTEROL
     Indication: ASTHMA
     Route: 055
     Dates: start: 2012

REACTIONS (6)
  - Body height decreased [Unknown]
  - Increased appetite [Unknown]
  - Alopecia [Not Recovered/Not Resolved]
  - Off label use [Not Recovered/Not Resolved]
  - Weight increased [Unknown]
  - Glaucoma [Unknown]

NARRATIVE: CASE EVENT DATE: 2012
